FAERS Safety Report 4650013-X (Version None)
Quarter: 2005Q2

REPORT INFORMATION
  Report Type: 
  Country: None (occurrence: None)
  Receive Date: 20050502
  Receipt Date: 20040728
  Transmission Date: 20051028
  Serious: Yes (Disabling)
  Sender: FDA-Public Use
  Company Number: CA-ROCHE-375645

PATIENT
  Age: 52 Year
  Sex: Male
  Weight: 81 kg

DRUGS (11)
  1. PEG-INTERFERON ALFA 2A (RO 25-8310) [Suspect]
     Dosage: STOPPED ON 15 JULY BUT DISCONTINUED ON 19 JULY.
     Route: 058
     Dates: start: 20040419, end: 20040715
  2. RIBAVIRIN [Suspect]
     Route: 048
     Dates: start: 20040419, end: 20040713
  3. ATIVAN [Concomitant]
     Dates: start: 20021115
  4. TYLENOL [Concomitant]
     Dates: start: 20000615
  5. MULTI-VITAMIN [Concomitant]
  6. OMEGA-3 FATTY ACIDS [Concomitant]
  7. VITAMIN C [Concomitant]
  8. SERAX [Concomitant]
     Dates: start: 20040520
  9. ZINC [Concomitant]
     Dates: start: 20020615, end: 20040702
  10. CALCIUM GLUCONATE [Concomitant]
  11. VITAMIN E [Concomitant]

REACTIONS (2)
  - RETINAL DETACHMENT [None]
  - RETINAL HAEMORRHAGE [None]
